FAERS Safety Report 18112255 (Version 1)
Quarter: 2020Q3

REPORT INFORMATION
  Report Type: Spontaneous
  Country: SE (occurrence: SE)
  Receive Date: 20200805
  Receipt Date: 20200805
  Transmission Date: 20201103
  Serious: Yes (Hospitalization)
  Sender: FDA-Public Use
  Company Number: SE-TEVA-2020-SE-1808829

PATIENT
  Age: 84 Year
  Sex: Male

DRUGS (9)
  1. FURIX [Concomitant]
  2. LASIX [Concomitant]
     Active Substance: FUROSEMIDE
  3. ALLOPURINOL. [Suspect]
     Active Substance: ALLOPURINOL
     Indication: GOUT
     Route: 048
     Dates: start: 20200430, end: 20200709
  4. ENALAPRIL [Concomitant]
     Active Substance: ENALAPRIL
  5. WARAN [Concomitant]
     Active Substance: WARFARIN SODIUM
  6. COLCHICINE. [Suspect]
     Active Substance: COLCHICINE
     Indication: GOUT
     Dates: start: 20200430, end: 20200709
  7. PROCRIN [Concomitant]
     Active Substance: LEUPROLIDE ACETATE
  8. FENURIL [Concomitant]
  9. SELOKENZOC [Concomitant]
     Active Substance: METOPROLOL SUCCINATE

REACTIONS (2)
  - Rash pruritic [Not Recovered/Not Resolved]
  - Diarrhoea [Not Recovered/Not Resolved]

NARRATIVE: CASE EVENT DATE: 20200618
